FAERS Safety Report 19272848 (Version 1)
Quarter: 2021Q2

REPORT INFORMATION
  Report Type: Spontaneous
  Country: SE (occurrence: SE)
  Receive Date: 20210519
  Receipt Date: 20210519
  Transmission Date: 20210717
  Serious: Yes (Hospitalization)
  Sender: FDA-Public Use
  Company Number: SE-SUN PHARMACEUTICAL INDUSTRIES LTD-2021RR-296789

PATIENT
  Age: 69 Year
  Sex: Male

DRUGS (7)
  1. ZOPICLONE [Concomitant]
     Active Substance: ZOPICLONE
     Indication: PRODUCT USED FOR UNKNOWN INDICATION
     Dosage: 1 TABLET AT 20:00 IF NEEDED (1); AS NECESSARY
     Route: 065
     Dates: start: 20190918
  2. OXASCAND [Concomitant]
     Active Substance: OXAZEPAM
     Indication: PRODUCT USED FOR UNKNOWN INDICATION
     Dosage: 1?2 TABLETS AS NEEDED, MAXIMUM 6 TABLETS PER DAY (1); AS NECESSARY
     Route: 065
     Dates: start: 20200220
  3. ALVEDON 500 MG FILMDRAGERAD TABLETT [Concomitant]
     Active Substance: ACETAMINOPHEN
     Indication: PRODUCT USED FOR UNKNOWN INDICATION
     Dosage: 1000 MILLIGRAM, DAILY
     Route: 065
     Dates: start: 20200311
  4. ACETYLCYSTEINE. [Concomitant]
     Active Substance: ACETYLCYSTEINE
     Indication: PRODUCT USED FOR UNKNOWN INDICATION
     Dosage: 1 EFFERVESCENT TABLET IF NEEDED, MAXIMUM 3 EFFERVESCENT TABLETS PER DAY (1); AS NECESSARY
     Route: 065
     Dates: start: 20200309
  5. OLANZAPINE. [Suspect]
     Active Substance: OLANZAPINE
     Indication: PRODUCT USED FOR UNKNOWN INDICATION
     Dosage: 10 MILLIGRAM, DAILY
     Route: 065
  6. MIDAZOLAM. [Concomitant]
     Active Substance: MIDAZOLAM
     Indication: PRODUCT USED FOR UNKNOWN INDICATION
     Dosage: 0.2?0.5 ML IF NEEDED (1); AS NECESSARY
     Route: 058
     Dates: start: 20200316
  7. LITHIONIT 42 MG  (6 MMOL) DEPOTTABLETT [Concomitant]
     Indication: PRODUCT USED FOR UNKNOWN INDICATION
     Dosage: 1 PROLONGED?RELEASE TABLET AT 08:00 AND 2 PROLONGED?RELEASE TABLETS AT 20:00 ()
     Route: 065
     Dates: start: 20190918

REACTIONS (3)
  - Fatigue [Recovered/Resolved]
  - Depressed level of consciousness [Recovered/Resolved]
  - Malaise [Recovered/Resolved]

NARRATIVE: CASE EVENT DATE: 20210331
